FAERS Safety Report 17807542 (Version 1)
Quarter: 2020Q2

REPORT INFORMATION
  Report Type: Report from Study
  Country: US (occurrence: US)
  Receive Date: 20200520
  Receipt Date: 20200520
  Transmission Date: 20200714
  Serious: Yes (Death, Other)
  Sender: FDA-Public Use
  Company Number: US-PFIZER INC-2020195912

PATIENT
  Age: 67 Year
  Sex: Female

DRUGS (7)
  1. NIMODIPINE. [Concomitant]
     Active Substance: NIMODIPINE
     Dosage: UNK (ENTERAL NIMODIPINE FOR 21D)
  2. PHENYLEPHRINE [Suspect]
     Active Substance: PHENYLEPHRINE HYDROCHLORIDE
     Indication: HYPERTENSION
     Dosage: UNK (1100 MCG/MIN)
  3. TRANEXAMIC ACID. [Concomitant]
     Active Substance: TRANEXAMIC ACID
     Dosage: UNK
  4. PHENYLEPHRINE [Suspect]
     Active Substance: PHENYLEPHRINE HYDROCHLORIDE
     Indication: DELAYED ISCHAEMIC NEUROLOGICAL DEFICIT
  5. LEVETIRACETAM. [Concomitant]
     Active Substance: LEVETIRACETAM
     Indication: SEIZURE PROPHYLAXIS
     Dosage: UNK (BRIEF COURSE)
  6. NOREPINEPHRINE BITARTRATE. [Suspect]
     Active Substance: NOREPINEPHRINE BITARTRATE
     Indication: DELAYED ISCHAEMIC NEUROLOGICAL DEFICIT
  7. NOREPINEPHRINE BITARTRATE. [Suspect]
     Active Substance: NOREPINEPHRINE BITARTRATE
     Indication: HYPERTENSION
     Dosage: UNK (60 MCG/MIN)

REACTIONS (2)
  - Posterior reversible encephalopathy syndrome [Fatal]
  - Lethargy [Fatal]
